FAERS Safety Report 17189578 (Version 4)
Quarter: 2020Q1

REPORT INFORMATION
  Report Type: Report from Study
  Country: None (occurrence: US)
  Receive Date: 20191223
  Receipt Date: 20200219
  Transmission Date: 20200409
  Serious: Yes (Hospitalization, Other)
  Sender: FDA-Public Use
  Company Number: US-ABBVIE-19K-163-3198659-00

PATIENT
  Age: 73 Year
  Sex: Male
  Weight: 76.27 kg

DRUGS (3)
  1. PREDNISONE. [Concomitant]
     Active Substance: PREDNISONE
     Indication: PRODUCT USED FOR UNKNOWN INDICATION
  2. HUMIRA [Suspect]
     Active Substance: ADALIMUMAB
     Route: 058
  3. HUMIRA [Suspect]
     Active Substance: ADALIMUMAB
     Indication: COLITIS ULCERATIVE
     Route: 058
     Dates: start: 20191118, end: 2019

REACTIONS (9)
  - Pulmonary thrombosis [Recovering/Resolving]
  - Pulmonary pain [Recovered/Resolved]
  - Loss of personal independence in daily activities [Unknown]
  - Insomnia [Unknown]
  - Back pain [Recovering/Resolving]
  - Abnormal faeces [Unknown]
  - Abdominal pain [Recovered/Resolved]
  - Depressed mood [Unknown]
  - Anxiety [Unknown]

NARRATIVE: CASE EVENT DATE: 2019
